FAERS Safety Report 4273682-5 (Version None)
Quarter: 2004Q1

REPORT INFORMATION
  Report Type: 
  Country: None (occurrence: None)
  Receive Date: 20040119
  Receipt Date: 20031022
  Transmission Date: 20041129
  Serious: Yes (Death, Life-Threatening, Hospitalization)
  Sender: FDA-Public Use
  Company Number: DE-ROCHE-349696

PATIENT
  Age: 36 Year
  Sex: Female

DRUGS (29)
  1. DACLIZUMAB [Suspect]
     Route: 042
     Dates: start: 20030817
  2. DACLIZUMAB [Suspect]
     Route: 042
     Dates: start: 20030830
  3. DACLIZUMAB [Suspect]
     Route: 042
     Dates: start: 20030911, end: 20031011
  4. MYCOPHENOLATE MOFETIL [Suspect]
     Route: 048
     Dates: start: 20030817, end: 20030817
  5. MYCOPHENOLATE MOFETIL [Suspect]
     Route: 048
     Dates: start: 20030818, end: 20030825
  6. MYCOPHENOLATE MOFETIL [Suspect]
     Route: 048
     Dates: start: 20030826, end: 20030904
  7. MYCOPHENOLATE MOFETIL [Suspect]
     Route: 048
     Dates: start: 20030905, end: 20030926
  8. MYCOPHENOLATE MOFETIL [Suspect]
     Route: 048
     Dates: start: 20031010, end: 20031020
  9. MYCOPHENOLATE MOFETIL [Suspect]
     Route: 048
     Dates: start: 20031028, end: 20031112
  10. TACROLIMUS [Suspect]
     Route: 048
     Dates: start: 20030817, end: 20030827
  11. TACROLIMUS [Suspect]
     Route: 048
     Dates: start: 20030828, end: 20030902
  12. TACROLIMUS [Suspect]
     Route: 048
     Dates: start: 20030903, end: 20030903
  13. TACROLIMUS [Suspect]
     Route: 048
     Dates: start: 20030904, end: 20030925
  14. TACROLIMUS [Suspect]
     Route: 048
     Dates: start: 20030926, end: 20031102
  15. TACROLIMUS [Suspect]
     Route: 048
     Dates: start: 20031103, end: 20031110
  16. URBASON [Suspect]
     Route: 048
     Dates: start: 20030817, end: 20030817
  17. URBASON [Suspect]
     Route: 048
     Dates: start: 20030818, end: 20030818
  18. URBASON [Suspect]
     Route: 048
     Dates: start: 20030819, end: 20030825
  19. URBASON [Suspect]
     Route: 048
     Dates: start: 20030826, end: 20030901
  20. URBASON [Suspect]
     Route: 048
     Dates: start: 20030902, end: 20030925
  21. URBASON [Suspect]
     Route: 048
     Dates: start: 20030926, end: 20031017
  22. URBASON [Suspect]
     Route: 048
     Dates: start: 20031018, end: 20031028
  23. URBASON [Suspect]
     Route: 048
     Dates: start: 20031029, end: 20031102
  24. URBASON [Suspect]
     Route: 048
     Dates: start: 20031103, end: 20031103
  25. URBASON [Suspect]
     Route: 048
     Dates: start: 20031104, end: 20031111
  26. URBASON [Suspect]
     Route: 048
     Dates: start: 20031112, end: 20031115
  27. PRAVASIN [Concomitant]
  28. METOPROLOL SUCCINATE [Concomitant]
  29. NORVASC [Concomitant]

REACTIONS (36)
  - ABDOMINAL COMPARTMENT SYNDROME [None]
  - ADHESION [None]
  - ARRHYTHMIA [None]
  - ATAXIA [None]
  - BLOOD CREATINE PHOSPHOKINASE INCREASED [None]
  - BLOOD LACTATE DEHYDROGENASE DECREASED [None]
  - BLOOD PRESSURE ABNORMAL [None]
  - COLITIS ULCERATIVE [None]
  - DIARRHOEA [None]
  - DISSEMINATED INTRAVASCULAR COAGULATION [None]
  - DIVERTICULUM [None]
  - DRUG TOXICITY [None]
  - ELECTROENCEPHALOGRAM ABNORMAL [None]
  - ENTEROCOCCAL INFECTION [None]
  - ESCHERICHIA INFECTION [None]
  - GASTROINTESTINAL NECROSIS [None]
  - HAEMOGLOBIN ABNORMAL [None]
  - HEPATIC ENZYME INCREASED [None]
  - HYPOTENSION [None]
  - INTESTINAL PERFORATION [None]
  - INTRA-ABDOMINAL HAEMORRHAGE [None]
  - ISCHAEMIA [None]
  - MULTI-ORGAN FAILURE [None]
  - NECROTISING COLITIS [None]
  - PERITONITIS [None]
  - POST PROCEDURAL HAEMORRHAGE [None]
  - PUPILS UNEQUAL [None]
  - RENAL FAILURE ACUTE [None]
  - SEPSIS [None]
  - SHOCK [None]
  - SINUSITIS [None]
  - STAPHYLOCOCCAL INFECTION [None]
  - SURGICAL PROCEDURE REPEATED [None]
  - TRANSPLANT REJECTION [None]
  - URINARY TRACT INFECTION [None]
  - WOUND HAEMORRHAGE [None]
